FAERS Safety Report 10446922 (Version 2)
Quarter: 2014Q4

REPORT INFORMATION
  Report Type: Spontaneous
  Country: US (occurrence: None)
  Receive Date: 20140909
  Receipt Date: 20141016
  Transmission Date: 20150528
  Serious: Yes (Other)
  Sender: FDA-Public Use
  Company Number: 2014-US-011113

PATIENT
  Age: 75 Year
  Sex: Female
  Weight: 54 kg

DRUGS (5)
  1. ESTRATEST (ESTROGENS ESTERIFLED, METHYLTESTOSTERONE) [Concomitant]
  2. XYREM [Suspect]
     Active Substance: SODIUM OXYBATE
     Indication: NARCOLEPSY
     Route: 048
     Dates: start: 200605, end: 2008
  3. SINGULAIR (MONTELUKAST SODIUM) [Concomitant]
  4. CHONDROITIN [Concomitant]
     Active Substance: CHONDROITIN
  5. METOPROLOL (METOPROLOL TARTRATE) [Concomitant]
     Active Substance: METOPROLOL TARTRATE

REACTIONS (2)
  - Wrist fracture [None]
  - Fall [None]

NARRATIVE: CASE EVENT DATE: 20140823
